FAERS Safety Report 7232940-2 (Version None)
Quarter: 2011Q1

REPORT INFORMATION
  Report Type: 
  Country: None (occurrence: None)
  Receive Date: 20110119
  Receipt Date: 20110114
  Transmission Date: 20110831
  Serious: Yes (Hospitalization)
  Sender: FDA-Public Use
  Company Number: US-GENZYME-CAMP-1001260

PATIENT

DRUGS (6)
  1. CAMPATH [Suspect]
     Indication: T-CELL PROLYMPHOCYTIC LEUKAEMIA
     Dosage: 3 MG, ONCE
     Route: 058
     Dates: start: 20110103, end: 20110103
  2. CAMPATH [Suspect]
     Dosage: 30 MG, ONCE
     Route: 058
     Dates: start: 20110107, end: 20110107
  3. CAMPATH [Suspect]
     Dosage: 3 MG, ONCE
     Route: 042
     Dates: start: 20110111, end: 20110111
  4. LISINOPRIL [Concomitant]
     Indication: BLOOD PRESSURE ABNORMAL
  5. CAMPATH [Suspect]
     Dosage: 10 MG, ONCE
     Route: 042
     Dates: start: 20110112, end: 20110112
  6. CAMPATH [Suspect]
     Dosage: 10 MG, ONCE
     Route: 058
     Dates: start: 20110105, end: 20110105

REACTIONS (3)
  - NAUSEA [None]
  - HYPONATRAEMIA [None]
  - CHILLS [None]
